FAERS Safety Report 6537487-4 (Version None)
Quarter: 2010Q1

REPORT INFORMATION
  Report Type: 
  Country: None (occurrence: None)
  Receive Date: 20100107
  Receipt Date: 20091222
  Transmission Date: 20100710
  Serious: Yes (Hospitalization, Other)
  Sender: FDA-Public Use
  Company Number: WAES 0912GBR00065

PATIENT
  Age: 68 Year
  Sex: Male

DRUGS (7)
  1. ZOCOR [Suspect]
     Dosage: 40 MG/DAILY PO
     Route: 048
  2. LIPITOR [Suspect]
     Dosage: 20 MG/DAILY PO ; 40 MG/DAILY PO ; 80 MG/DAILY PO
     Route: 048
  3. GLUCOPHAGE [Concomitant]
  4. PRINIVIL [Concomitant]
  5. AMLODIPINE [Concomitant]
  6. ASPIRIN [Concomitant]
  7. ATENOLOL [Concomitant]

REACTIONS (2)
  - CORONARY ARTERY DISEASE [None]
  - MYALGIA [None]
